FAERS Safety Report 9403816 (Version 10)
Quarter: 2015Q4

REPORT INFORMATION
  Report Type: Report from Study
  Country: CA (occurrence: CA)
  Receive Date: 20130717
  Receipt Date: 20151023
  Transmission Date: 20160305
  Serious: Yes (Life-Threatening, Hospitalization, Other)
  Sender: FDA-Public Use
  Company Number: CA-ROCHE-1247304

PATIENT
  Age: 34 Year
  Sex: Male
  Weight: 68 kg

DRUGS (21)
  1. ACETAMINOPHEN. [Concomitant]
     Active Substance: ACETAMINOPHEN
     Route: 048
     Dates: start: 20130220
  2. PREDNISONE. [Concomitant]
     Active Substance: PREDNISONE
     Route: 065
     Dates: start: 200509
  3. PREVACID [Concomitant]
     Active Substance: LANSOPRAZOLE
  4. ARANESP [Concomitant]
     Active Substance: DARBEPOETIN ALFA
  5. METHYLPREDNISOLONE. [Concomitant]
     Active Substance: METHYLPREDNISOLONE
     Indication: PREMEDICATION
     Route: 042
     Dates: start: 20100108, end: 20100108
  6. PANTOPRAZOLE [Concomitant]
     Active Substance: PANTOPRAZOLE SODIUM
  7. ONDANSETRON [Concomitant]
     Active Substance: ONDANSETRON
  8. RITUXAN [Suspect]
     Active Substance: RITUXIMAB
     Dosage: 1 DOSE
     Route: 042
     Dates: start: 201308
  9. RITUXAN [Suspect]
     Active Substance: RITUXIMAB
     Route: 042
     Dates: start: 201402
  10. PRUCALOPRIDE [Suspect]
     Active Substance: PRUCALOPRIDE
     Indication: PRODUCT USED FOR UNKNOWN INDICATION
     Route: 065
  11. CARVEDILOL. [Concomitant]
     Active Substance: CARVEDILOL
  12. RITUXAN [Suspect]
     Active Substance: RITUXIMAB
     Route: 042
     Dates: start: 201303
  13. DOMPERIDONE [Concomitant]
     Active Substance: DOMPERIDONE
  14. ACETAMINOPHEN. [Concomitant]
     Active Substance: ACETAMINOPHEN
     Indication: PREMEDICATION
     Route: 048
     Dates: start: 20100108
  15. METHYLPREDNISOLONE. [Concomitant]
     Active Substance: METHYLPREDNISOLONE
     Route: 042
     Dates: start: 20100507
  16. RITUXAN [Suspect]
     Active Substance: RITUXIMAB
     Indication: VASCULITIS
     Dosage: DAY 1, DAY 15
     Route: 042
     Dates: start: 200909
  17. RITUXAN [Suspect]
     Active Substance: RITUXIMAB
     Indication: CRYOGLOBULINAEMIA
     Route: 042
     Dates: start: 201107, end: 201202
  18. ACYCLOVIR. [Concomitant]
     Active Substance: ACYCLOVIR
     Indication: EYE DISORDER
     Route: 065
     Dates: start: 201212
  19. RITUXAN [Suspect]
     Active Substance: RITUXIMAB
     Indication: VASCULITIS
     Dosage: DAY 1, DAY 15?PREVIOUS DOSE WAS ON 11/FEB/2014.
     Route: 042
     Dates: start: 20100108
  20. DIPHENHYDRAMINE HCL [Concomitant]
     Active Substance: DIPHENHYDRAMINE HYDROCHLORIDE
     Indication: PREMEDICATION
     Route: 048
     Dates: start: 20100108
  21. SEPTRA [Concomitant]
     Active Substance: SULFAMETHOXAZOLE\TRIMETHOPRIM

REACTIONS (46)
  - Neuropathy peripheral [Unknown]
  - Ascites [Unknown]
  - Drug hypersensitivity [Unknown]
  - Melaena [Unknown]
  - Enterococcal infection [Unknown]
  - Amnesia [Unknown]
  - Dysarthria [Unknown]
  - Gastrooesophageal reflux disease [Not Recovered/Not Resolved]
  - Change of bowel habit [Not Recovered/Not Resolved]
  - Gastrointestinal wall thickening [Not Recovered/Not Resolved]
  - Diarrhoea [Recovering/Resolving]
  - Vitamin D deficiency [Not Recovered/Not Resolved]
  - Bone marrow myelogram abnormal [Unknown]
  - Angioedema [Unknown]
  - Acute coronary syndrome [Unknown]
  - Nausea [Recovering/Resolving]
  - Viral infection [Unknown]
  - Oesophagitis [Recovering/Resolving]
  - Ill-defined disorder [Unknown]
  - Iron deficiency [Not Recovered/Not Resolved]
  - Off label use [Unknown]
  - Fatigue [Unknown]
  - Weight decreased [Unknown]
  - Vitamin B12 deficiency [Not Recovered/Not Resolved]
  - Mineral deficiency [Not Recovered/Not Resolved]
  - Abdominal pain [Not Recovered/Not Resolved]
  - Septic shock [Unknown]
  - Infection [Unknown]
  - Pancytopenia [Recovering/Resolving]
  - Colitis [Unknown]
  - Hypertension [Unknown]
  - Respiratory disorder [Unknown]
  - Vomiting [Unknown]
  - Irritable bowel syndrome [Unknown]
  - Magnesium deficiency [Not Recovered/Not Resolved]
  - Hypokalaemia [Not Recovered/Not Resolved]
  - Blood creatinine increased [Unknown]
  - Hepatic cyst [Unknown]
  - Malaise [Unknown]
  - Platelet count decreased [Unknown]
  - Clostridium difficile infection [Unknown]
  - Abdominal pain upper [Unknown]
  - Streptococcal bacteraemia [Unknown]
  - Pyrexia [Unknown]
  - Impaired gastric emptying [Recovering/Resolving]
  - Clostridium difficile infection [Recovered/Resolved]

NARRATIVE: CASE EVENT DATE: 200909
